FAERS Safety Report 7142834-9 (Version None)
Quarter: 2010Q4

REPORT INFORMATION
  Report Type: 
  Country: None (occurrence: None)
  Receive Date: 20101207
  Receipt Date: 20101130
  Transmission Date: 20110411
  Serious: Yes (Other)
  Sender: FDA-Public Use
  Company Number: US-PFIZER INC-2010128501

PATIENT
  Sex: Female
  Weight: 63.492 kg

DRUGS (10)
  1. LYRICA [Suspect]
     Indication: BACK PAIN
     Dosage: 100 MG, 3X/DAY
     Route: 048
     Dates: start: 20100501
  2. LYRICA [Suspect]
     Indication: NERVE INJURY
  3. LYRICA [Suspect]
     Indication: PAIN
  4. PRAVASTATIN [Concomitant]
     Indication: BLOOD CHOLESTEROL INCREASED
     Dosage: UNK
  5. VITAMIN D [Concomitant]
     Dosage: UNK
  6. FISH OIL [Concomitant]
     Dosage: 1000 MG, UNK
  7. OSCAL [Concomitant]
     Indication: BONE DISORDER
     Dosage: 600 MG, UNK
  8. CENTRUM SILVER [Concomitant]
     Dosage: UNK
  9. ALEVE (CAPLET) [Concomitant]
     Indication: ARTHRITIS
     Dosage: UNK
  10. CYMBALTA [Concomitant]

REACTIONS (11)
  - BALANCE DISORDER [None]
  - DIZZINESS [None]
  - DRY MOUTH [None]
  - GINGIVAL SWELLING [None]
  - JOINT SWELLING [None]
  - OEDEMA PERIPHERAL [None]
  - PAIN [None]
  - SOMNOLENCE [None]
  - TENDON DISORDER [None]
  - TENDON PAIN [None]
  - WEIGHT INCREASED [None]
